FAERS Safety Report 6313980-4 (Version None)
Quarter: 2009Q3

REPORT INFORMATION
  Report Type: 
  Country: None (occurrence: None)
  Receive Date: 20090818
  Receipt Date: 20090810
  Transmission Date: 20100115
  Serious: Yes (Other)
  Sender: FDA-Public Use
  Company Number: PHHY2009MX33602

PATIENT
  Age: 56 Year
  Sex: Female

DRUGS (2)
  1. DIOVAN [Suspect]
     Indication: HYPERTENSION
     Dosage: 2 TABLETS (80 MG) PER DAY
     Dates: start: 20080901
  2. DIOVAN [Suspect]
     Dosage: 2 TABLETS (80 MG) PER DAY
     Dates: start: 20090801

REACTIONS (4)
  - BONE PAIN [None]
  - DEPRESSION [None]
  - HEADACHE [None]
  - VISUAL IMPAIRMENT [None]
